FAERS Safety Report 5155384-6 (Version None)
Quarter: 2006Q4

REPORT INFORMATION
  Report Type: 
  Country: None (occurrence: None)
  Receive Date: 20061114
  Receipt Date: 20061101
  Transmission Date: 20070319
  Serious: Yes (Other)
  Sender: FDA-Public Use
  Company Number: 2006110120

PATIENT
  Age: 69 Year
  Sex: Female
  Weight: 86.1834 kg

DRUGS (11)
  1. CLEOCIN HCL CAPSULE (CLINDAMYCIN HYDROCHLORIDE) [Suspect]
     Indication: ABSCESS
     Dosage: 150 MG (150 MG, 1 IN 1 D), ORAL; 900 MG (300 MG, 3 IN 1D), ORAL; 1200 MG (300 MG, 4 IN 1 D), ORAL
     Route: 048
     Dates: start: 20051114, end: 20051121
  2. CLEOCIN HCL CAPSULE (CLINDAMYCIN HYDROCHLORIDE) [Suspect]
     Indication: OSTEOMYELITIS
     Dosage: 150 MG (150 MG, 1 IN 1 D), ORAL; 900 MG (300 MG, 3 IN 1D), ORAL; 1200 MG (300 MG, 4 IN 1 D), ORAL
     Route: 048
     Dates: start: 20051114, end: 20051121
  3. CLEOCIN HCL CAPSULE (CLINDAMYCIN HYDROCHLORIDE) [Suspect]
     Indication: POSTOPERATIVE CARE
     Dosage: 150 MG (150 MG, 1 IN 1 D), ORAL; 900 MG (300 MG, 3 IN 1D), ORAL; 1200 MG (300 MG, 4 IN 1 D), ORAL
     Route: 048
     Dates: start: 20051114, end: 20051121
  4. CLEOCIN HCL CAPSULE (CLINDAMYCIN HYDROCHLORIDE) [Suspect]
     Indication: ABSCESS
     Dosage: 150 MG (150 MG, 1 IN 1 D), ORAL; 900 MG (300 MG, 3 IN 1D), ORAL; 1200 MG (300 MG, 4 IN 1 D), ORAL
     Route: 048
     Dates: start: 20060627, end: 20060718
  5. CLEOCIN HCL CAPSULE (CLINDAMYCIN HYDROCHLORIDE) [Suspect]
     Indication: OSTEOMYELITIS
     Dosage: 150 MG (150 MG, 1 IN 1 D), ORAL; 900 MG (300 MG, 3 IN 1D), ORAL; 1200 MG (300 MG, 4 IN 1 D), ORAL
     Route: 048
     Dates: start: 20060627, end: 20060718
  6. CLEOCIN HCL CAPSULE (CLINDAMYCIN HYDROCHLORIDE) [Suspect]
     Indication: POSTOPERATIVE CARE
     Dosage: 150 MG (150 MG, 1 IN 1 D), ORAL; 900 MG (300 MG, 3 IN 1D), ORAL; 1200 MG (300 MG, 4 IN 1 D), ORAL
     Route: 048
     Dates: start: 20060627, end: 20060718
  7. CLEOCIN HCL CAPSULE (CLINDAMYCIN HYDROCHLORIDE) [Suspect]
     Indication: ABSCESS
     Dosage: 150 MG (150 MG, 1 IN 1 D), ORAL; 900 MG (300 MG, 3 IN 1D), ORAL; 1200 MG (300 MG, 4 IN 1 D), ORAL
     Route: 048
     Dates: start: 20060401
  8. CLEOCIN HCL CAPSULE (CLINDAMYCIN HYDROCHLORIDE) [Suspect]
     Indication: OSTEOMYELITIS
     Dosage: 150 MG (150 MG, 1 IN 1 D), ORAL; 900 MG (300 MG, 3 IN 1D), ORAL; 1200 MG (300 MG, 4 IN 1 D), ORAL
     Route: 048
     Dates: start: 20060401
  9. CLEOCIN HCL CAPSULE (CLINDAMYCIN HYDROCHLORIDE) [Suspect]
     Indication: POSTOPERATIVE CARE
     Dosage: 150 MG (150 MG, 1 IN 1 D), ORAL; 900 MG (300 MG, 3 IN 1D), ORAL; 1200 MG (300 MG, 4 IN 1 D), ORAL
     Route: 048
     Dates: start: 20060401
  10. B COMPLEX (NICOTINAMIDE, PYRIDOXINE HYDROCHLORIDE, RIBOFLAVIN, THIAMIN [Concomitant]
  11. PRILOSEC [Concomitant]

REACTIONS (3)
  - BLOOD CHOLESTEROL INCREASED [None]
  - DYSGEUSIA [None]
  - POLYARTHRITIS [None]
